FAERS Safety Report 24189331 (Version 1)
Quarter: 2024Q3

REPORT INFORMATION
  Report Type: Spontaneous
  Country: MX (occurrence: MX)
  Receive Date: 20240808
  Receipt Date: 20240808
  Transmission Date: 20241017
  Serious: Yes (Death)
  Sender: ROCHE
  Company Number: MX-ROCHE-10000051242

PATIENT
  Age: 8 Month
  Sex: Female

DRUGS (1)
  1. RISDIPLAM [Suspect]
     Active Substance: RISDIPLAM
     Indication: Spinal muscular atrophy
     Dosage: 60 MG POWDER TO RECONSTITUTE (0.75 MG/ML)
     Route: 065

REACTIONS (1)
  - Respiratory arrest [Fatal]
